FAERS Safety Report 5820758-4 (Version None)
Quarter: 2008Q3

REPORT INFORMATION
  Report Type: 
  Country: None (occurrence: None)
  Receive Date: 20080724
  Receipt Date: 20080411
  Transmission Date: 20090109
  Serious: No
  Sender: FDA-Public Use
  Company Number: A0723759A

PATIENT
  Age: 67 Year
  Sex: Female

DRUGS (9)
  1. AVANDIA [Suspect]
     Indication: DRUG USE FOR UNKNOWN INDICATION
     Route: 048
  2. LANTUS [Suspect]
     Dosage: 35UNIT PER DAY
     Route: 058
  3. UNSPECIFIED MEDICATION [Suspect]
  4. GLIPIZIDE [Concomitant]
  5. TOCOPHERYL ACETATE [Concomitant]
  6. SYNTHROID [Concomitant]
  7. MAXZIDE [Concomitant]
  8. LASIX [Concomitant]
  9. POTASSIUM CHLORIDE [Concomitant]

REACTIONS (2)
  - BLOOD GLUCOSE INCREASED [None]
  - DRUG ADMINISTRATION ERROR [None]
